FAERS Safety Report 6887323-1 (Version None)
Quarter: 2010Q3

REPORT INFORMATION
  Report Type: 
  Country: None (occurrence: None)
  Receive Date: 20100730
  Receipt Date: 20090731
  Transmission Date: 20110219
  Serious: No
  Sender: FDA-Public Use
  Company Number: A0799876A

PATIENT
  Age: 64 Year
  Sex: Female

DRUGS (6)
  1. IMITREX [Suspect]
     Indication: MIGRAINE
     Dosage: 50MG AS REQUIRED
     Route: 048
  2. NAPROXEN [Suspect]
     Indication: MIGRAINE
     Route: 065
  3. VERAPAMIL [Concomitant]
  4. NORTRIPTYLINE [Concomitant]
  5. LEVOXYL [Concomitant]
  6. PAXIL [Concomitant]

REACTIONS (1)
  - DRUG INEFFECTIVE [None]
